FAERS Safety Report 5598658-7 (Version None)
Quarter: 2008Q1

REPORT INFORMATION
  Report Type: 
  Country: None (occurrence: None)
  Receive Date: 20080122
  Receipt Date: 20080114
  Transmission Date: 20080703
  Serious: Yes (Death)
  Sender: FDA-Public Use
  Company Number: DE-ROCHE-541306

PATIENT
  Age: 80 Year
  Sex: Female

DRUGS (22)
  1. UNAT [Suspect]
     Route: 048
     Dates: start: 20050326
  2. CLEXANE [Suspect]
     Indication: THROMBOSIS PROPHYLAXIS
     Route: 058
     Dates: start: 20050326
  3. NIFEDIPINE [Suspect]
     Route: 048
     Dates: start: 20030101
  4. ENALAPRIL MALEATE [Suspect]
     Route: 048
     Dates: start: 20050326
  5. TUTOFUSIN [Suspect]
     Indication: DRUG USE FOR UNKNOWN INDICATION
     Dosage: SOLUTION FOR INFUSION.
     Route: 042
     Dates: start: 20050326
  6. KABIVEN [Suspect]
     Indication: PARENTERAL NUTRITION
     Route: 042
     Dates: start: 20050326
  7. LORZAAR [Suspect]
     Dosage: OTHER STRENGTH REPORTED: 12.5 MG
     Route: 048
     Dates: start: 20030101
  8. METOPROLOL SUCCINATE [Suspect]
     Route: 048
     Dates: start: 20050326
  9. NORVASC [Suspect]
     Dosage: OTHER DOSAGE REGIMEN REPORTED AS: 1-0-1/2
     Route: 048
     Dates: start: 20050326
  10. ALLOPURINOL [Suspect]
     Route: 048
     Dates: start: 20050214
  11. SIMVAHEXAL [Suspect]
     Route: 048
     Dates: start: 20030101
  12. IDEOS [Suspect]
     Indication: SECONDARY HYPOTHYROIDISM
     Dosage: FORM REPORTED: CHEWING TABLETS
     Route: 048
     Dates: start: 20050326
  13. CLONT [Suspect]
     Route: 048
  14. DECORTIN H [Suspect]
     Indication: DRUG USE FOR UNKNOWN INDICATION
     Route: 048
  15. NEBILET [Concomitant]
     Dosage: DOSE REPORTED AS 0-1/2-0
     Route: 048
     Dates: start: 20030301
  16. MOXONIDINE [Concomitant]
     Route: 048
     Dates: start: 20030301
  17. QUINAPRIL HCL [Concomitant]
     Route: 048
     Dates: start: 20030101
  18. 1 CONCOMITANT DRUG [Concomitant]
     Dosage: DRUG: MERONORM, FORM: SOLUTION FOR INJRCTION.
     Route: 048
     Dates: start: 20050214
  19. PIPRIL [Concomitant]
     Route: 042
     Dates: start: 20050326
  20. COMBACTAM [Concomitant]
     Route: 042
     Dates: start: 20050326
  21. VANCOMYCIN [Concomitant]
     Indication: SEPSIS
     Route: 042
  22. RIFAMPICIN [Concomitant]
     Indication: SEPSIS
     Route: 042

REACTIONS (1)
  - STEVENS-JOHNSON SYNDROME [None]
